FAERS Safety Report 9147227 (Version 1)
Quarter: 2013Q1

REPORT INFORMATION
  Report Type: Report from Study
  Country: CA (occurrence: CA)
  Receive Date: 20130307
  Receipt Date: 20130307
  Transmission Date: 20140127
  Serious: Yes (Other)
  Sender: FDA-Public Use
  Company Number: CA-ROCHE-1156671

PATIENT
  Age: 34 Year
  Sex: Female
  Weight: 74 kg

DRUGS (4)
  1. TOCILIZUMAB [Suspect]
     Indication: RHEUMATOID ARTHRITIS
     Route: 042
     Dates: start: 20121017, end: 20121114
  2. IBUPROFEN [Concomitant]
  3. TYLENOL #3 (CANADA) [Concomitant]
  4. BOTOX [Concomitant]
     Indication: MIGRAINE

REACTIONS (6)
  - Dyspnoea [Unknown]
  - Hot flush [Unknown]
  - Hyperhidrosis [Unknown]
  - Pruritus [Unknown]
  - Tachycardia [Unknown]
  - Flushing [Unknown]
